FAERS Safety Report 9126053 (Version 5)
Quarter: 2013Q3

REPORT INFORMATION
  Report Type: Spontaneous
  Country: US (occurrence: US)
  Receive Date: 20130117
  Receipt Date: 20130807
  Transmission Date: 20140515
  Serious: Yes (Hospitalization, Other)
  Sender: FDA-Public Use
  Company Number: US-009507513-1301USA007508

PATIENT
  Sex: Female
  Weight: 63.49 kg

DRUGS (11)
  1. FOSAMAX [Suspect]
     Indication: OSTEOPOROSIS
     Dosage: 70 MG, QW
     Route: 048
     Dates: end: 20080424
  2. ALENDRONATE SODIUM [Suspect]
     Indication: OSTEOPOROSIS
     Dosage: 70 MG, QW
     Route: 048
     Dates: start: 20080425, end: 20090122
  3. ACTONEL [Suspect]
     Indication: OSTEOPOROSIS
     Dosage: 70 MG, QM
     Dates: start: 20090123, end: 201101
  4. CORTICOSTEROIDS (UNSPECIFIED) [Concomitant]
     Dosage: UNK
     Dates: start: 1990
  5. HORMONES (UNSPECIFIED) [Concomitant]
     Dosage: UNK
     Dates: start: 1992, end: 2002
  6. OXYCODONE [Concomitant]
     Indication: RHEUMATOID ARTHRITIS
     Dosage: UNK
     Dates: start: 2000
  7. GABAPENTIN [Concomitant]
     Indication: RHEUMATOID ARTHRITIS
     Dosage: 600-1200 MG Q DAY
     Route: 048
     Dates: start: 2000
  8. CALCIUM (UNSPECIFIED) [Concomitant]
     Indication: BONE DISORDER
     Dosage: 600 MG, TID
     Route: 048
     Dates: start: 1990
  9. PREDNISONE [Concomitant]
     Indication: RHEUMATOID ARTHRITIS
     Dosage: 5-10 MG, QD
     Route: 048
  10. HUMIRA [Concomitant]
     Indication: RHEUMATOID ARTHRITIS
     Dosage: 2 X PER MONTH
  11. FOSAMAX PLUS D [Suspect]
     Route: 048

REACTIONS (46)
  - Femur fracture [Recovered/Resolved]
  - Intramedullary rod insertion [Unknown]
  - Knee arthroplasty [Unknown]
  - Joint arthroplasty [Unknown]
  - Joint arthroplasty [Unknown]
  - Knee arthroplasty [Unknown]
  - Pneumonia [Unknown]
  - Cyst removal [Unknown]
  - Toe operation [Unknown]
  - Pneumonia aspiration [Unknown]
  - Acute respiratory failure [Unknown]
  - Hypotension [Recovered/Resolved]
  - Sepsis [Recovered/Resolved]
  - Respiratory failure [Unknown]
  - Stoma care [Unknown]
  - Cervical spinal stenosis [Unknown]
  - Cervical myelopathy [Unknown]
  - Ankylosing spondylitis [Unknown]
  - Atlantoaxial instability [Unknown]
  - Spinal decompression [Unknown]
  - Spinal fusion surgery [Unknown]
  - Spinal fusion surgery [Unknown]
  - Bone graft [Unknown]
  - Joint dislocation reduction [Unknown]
  - Infection [Unknown]
  - Sinus tachycardia [Unknown]
  - Leukocytosis [Not Recovered/Not Resolved]
  - Vitamin D deficiency [Unknown]
  - Laceration [Unknown]
  - Hernia repair [Unknown]
  - Eye muscle operation [Unknown]
  - Osteopenia [Unknown]
  - Pain [Not Recovered/Not Resolved]
  - Neuralgia [Unknown]
  - Liver function test abnormal [Unknown]
  - Gallbladder disorder [Unknown]
  - Bursitis [Unknown]
  - Staphylococcal infection [Unknown]
  - Pneumonia [Unknown]
  - Overdose [Unknown]
  - Biliary dilatation [Unknown]
  - Soft tissue infection [Unknown]
  - Pyrexia [Unknown]
  - Nausea [Unknown]
  - Back pain [Unknown]
  - Gastrooesophageal reflux disease [Unknown]
